FAERS Safety Report 21299812 (Version 1)
Quarter: 2022Q3

REPORT INFORMATION
  Report Type: Spontaneous
  Country: AU (occurrence: AU)
  Receive Date: 20220906
  Receipt Date: 20220906
  Transmission Date: 20221026
  Serious: Yes (Other)
  Sender: FDA-Public Use
  Company Number: AU-NAPPMUNDI-GBR-2022-0101133

PATIENT
  Age: 75 Year
  Sex: Female

DRUGS (1)
  1. OXYCONTIN [Suspect]
     Active Substance: OXYCODONE HYDROCHLORIDE
     Indication: Spinal pain
     Dosage: 20 MILLIGRAM, TID
     Route: 048

REACTIONS (4)
  - Choking [Unknown]
  - Loss of consciousness [Unknown]
  - Sleep paralysis [Unknown]
  - Pain in extremity [Unknown]
